FAERS Safety Report 9894524 (Version 2)
Quarter: 2014Q1

REPORT INFORMATION
  Report Type: Spontaneous
  Country: JP (occurrence: JP)
  Receive Date: 20140213
  Receipt Date: 20140213
  Transmission Date: 20141002
  Serious: Yes (Hospitalization)
  Sender: FDA-Public Use
  Company Number: JP-B.I. PHARMACEUTICALS,INC./RIDGEFIELD-2013-BI-40940NB

PATIENT
  Age: 62 Year
  Sex: Male

DRUGS (6)
  1. PRAZAXA [Suspect]
     Indication: CEREBRAL INFARCTION
     Dosage: 300 MG
     Route: 048
     Dates: end: 20131203
  2. UNISIA / CANDESARTAN CILEXETIL_AMLODIPINE BESILATE COMBINED DRUG [Concomitant]
     Dosage: 8MG/5MG
     Route: 048
  3. KAZMARIN / DOXAZOSIN MESILATE [Concomitant]
     Dosage: 2 MG
     Route: 048
  4. URIC / ALLOPURINOL [Concomitant]
     Dosage: 100 MG
     Route: 048
  5. SILVINOL / NICORANDIL [Concomitant]
     Dosage: 15 MG
     Route: 048
  6. RABEPRAZOLE NA / SODIUM RABEPRAZOLE [Concomitant]
     Dosage: 20 MG
     Route: 048

REACTIONS (4)
  - Gastrointestinal haemorrhage [Recovered/Resolved]
  - Dizziness [Recovered/Resolved]
  - Dizziness [Recovered/Resolved]
  - Haemoglobin decreased [Recovered/Resolved]
